FAERS Safety Report 6901279-4 (Version None)
Quarter: 2010Q3

REPORT INFORMATION
  Report Type: 
  Country: None (occurrence: None)
  Receive Date: 20100803
  Receipt Date: 20100727
  Transmission Date: 20110219
  Serious: Yes (Hospitalization)
  Sender: FDA-Public Use
  Company Number: DE-SANOFI-AVENTIS-2010SA043681

PATIENT
  Age: 64 Year
  Sex: Female
  Weight: 72 kg

DRUGS (10)
  1. MULTAQ [Suspect]
     Indication: ATRIAL FIBRILLATION
     Route: 048
     Dates: start: 20100715, end: 20100720
  2. PHENPROCOUMON [Concomitant]
     Indication: ATRIAL THROMBOSIS
  3. PHENPROCOUMON [Concomitant]
     Indication: ATRIAL FIBRILLATION
  4. CLOPIDOGREL [Concomitant]
     Indication: ATRIAL THROMBOSIS
  5. DIGITOXIN [Concomitant]
     Indication: ATRIAL FIBRILLATION
     Route: 048
  6. METOHEXAL [Concomitant]
     Indication: ATRIAL FIBRILLATION
     Route: 048
  7. ATACAND [Concomitant]
     Dosage: 2 X 32/25 MG
     Route: 048
  8. CARMEN [Concomitant]
     Route: 048
  9. SIMVASTATIN [Concomitant]
     Route: 048
  10. LEVOTHYROXINE SODIUM [Concomitant]
     Indication: HYPOTHYROIDISM
     Route: 048

REACTIONS (4)
  - ARRHYTHMIA [None]
  - ELECTROCARDIOGRAM R ON T PHENOMENON [None]
  - EXTRASYSTOLES [None]
  - LONG QT SYNDROME [None]
